FAERS Safety Report 5012917-8 (Version None)
Quarter: 2006Q2

REPORT INFORMATION
  Report Type: 
  Country: None (occurrence: None)
  Receive Date: 20060525
  Receipt Date: 20060525
  Transmission Date: 20061013
  Serious: Yes (Hospitalization)
  Sender: FDA-Public Use
  Company Number: None

PATIENT
  Age: 23 Year
  Sex: Female
  Weight: 56.6996 kg

DRUGS (3)
  1. ZOLOFT [Suspect]
     Indication: MAJOR DEPRESSION
     Dosage: 100 MG DAILY PO
     Route: 048
  2. WELLBUTRIN [Concomitant]
  3. ZOLOFT [Concomitant]

REACTIONS (9)
  - AMNESIA [None]
  - ANOREXIA [None]
  - ANXIETY [None]
  - DIVORCED [None]
  - HALLUCINATION [None]
  - INAPPROPRIATE SCHEDULE OF DRUG ADMINISTRATION [None]
  - INSOMNIA [None]
  - MANIA [None]
  - SUICIDAL IDEATION [None]
